FAERS Safety Report 12056845 (Version 1)
Quarter: 2016Q1

REPORT INFORMATION
  Report Type: Spontaneous
  Country: DE (occurrence: DE)
  Receive Date: 20160209
  Receipt Date: 20160209
  Transmission Date: 20160526
  Serious: Yes (Hospitalization)
  Sender: FDA-Public Use
  Company Number: DE-TEVA-631739GER

PATIENT
  Age: 74 Year
  Sex: Female
  Weight: 86 kg

DRUGS (4)
  1. ALENDRONSAEURE [Suspect]
     Active Substance: ALENDRONATE SODIUM
     Indication: OSTEOPOROSIS
     Route: 048
     Dates: start: 20150808, end: 20151115
  2. METOPROLOL. [Concomitant]
     Active Substance: METOPROLOL
     Indication: HYPERTENSION
     Dosage: 47.5 MILLIGRAM DAILY;
     Route: 048
  3. SIMVASTATIN. [Concomitant]
     Active Substance: SIMVASTATIN
     Indication: HYPERCHOLESTEROLAEMIA
     Dosage: 40 MILLIGRAM DAILY;
     Route: 048
  4. RAMIPRIL COMP 5/12.5 [Concomitant]
     Indication: HYPERTENSION
     Dosage: 1 DOSAGE FORMS DAILY; 1 DOSAGE FORM INCLUDES 5 MG RAMIPRIL AND 12,5 MG HYDROCHLOROTHIAZIDE
     Route: 048

REACTIONS (3)
  - Headache [Recovered/Resolved]
  - Visual impairment [Recovered/Resolved]
  - Cerebral microangiopathy [None]

NARRATIVE: CASE EVENT DATE: 201508
